FAERS Safety Report 8841696 (Version 1)
Quarter: 2012Q4

REPORT INFORMATION
  Report Type: 
  Country: US (occurrence: US)
  Receive Date: 20121016
  Receipt Date: 20121016
  Transmission Date: 20130627
  Serious: Yes (Other)
  Sender: FDA-Public Use
  Company Number: US-AMGEN-USASP2012065179

PATIENT
  Age: 76 Year
  Sex: Male
  Weight: 68.03 kg

DRUGS (1)
  1. PROCRIT [Suspect]
     Indication: RENAL FAILURE
     Dosage: 10000 unit, qwk
     Route: 058
     Dates: end: 201009

REACTIONS (3)
  - Renal failure [Not Recovered/Not Resolved]
  - Inappropriate schedule of drug administration [Recovered/Resolved]
  - Abnormal loss of weight [Not Recovered/Not Resolved]
